FAERS Safety Report 6169023-9 (Version None)
Quarter: 2009Q2

REPORT INFORMATION
  Report Type: 
  Country: None (occurrence: None)
  Receive Date: 20090424
  Receipt Date: 20090424
  Transmission Date: 20091009
  Serious: Yes (Hospitalization)
  Sender: FDA-Public Use
  Company Number: None

PATIENT
  Age: 85 Year
  Sex: Female

DRUGS (2)
  1. WARFARIN SODIUM [Suspect]
     Dosage: WARFARIN
  2. PAROXETINE HCL [Suspect]
     Dosage: PAROXETINE  20MG DAILY PO
     Route: 048

REACTIONS (5)
  - COAGULOPATHY [None]
  - DRUG INTERACTION [None]
  - GASTROINTESTINAL HAEMORRHAGE [None]
  - HAEMATOCRIT DECREASED [None]
  - HAEMOGLOBIN DECREASED [None]
